FAERS Safety Report 6843699-2 (Version None)
Quarter: 2010Q3

REPORT INFORMATION
  Report Type: 
  Country: None (occurrence: None)
  Receive Date: 20100715
  Receipt Date: 20100706
  Transmission Date: 20110219
  Serious: Yes (Other)
  Sender: FDA-Public Use
  Company Number: JP-SANOFI-AVENTIS-2010SA038968

PATIENT
  Age: 80 Year
  Sex: Female

DRUGS (3)
  1. LASIX [Suspect]
     Indication: OEDEMA
     Route: 048
  2. LASIX [Suspect]
     Route: 048
  3. LANIRAPID [Suspect]
     Indication: ANGINA PECTORIS

REACTIONS (2)
  - CONVULSION [None]
  - HEART RATE DECREASED [None]
